FAERS Safety Report 8533783-X (Version None)
Quarter: 2012Q3

REPORT INFORMATION
  Report Type: 
  Country: None (occurrence: None)
  Receive Date: 20120724
  Receipt Date: 20120717
  Transmission Date: 20120928
  Serious: Yes (Other)
  Sender: FDA-Public Use
  Company Number: US-US-EMD SERONO, INC.-7028461

PATIENT
  Sex: Male

DRUGS (1)
  1. REBIF [Suspect]
     Indication: MULTIPLE SCLEROSIS
     Route: 058
     Dates: start: 20061211

REACTIONS (4)
  - FOREIGN BODY ASPIRATION [None]
  - CHOKING [None]
  - INFLUENZA LIKE ILLNESS [None]
  - DYSPHAGIA [None]
